FAERS Safety Report 26143928 (Version 1)
Quarter: 2025Q4

REPORT INFORMATION
  Report Type: Spontaneous
  Country: JP (occurrence: JP)
  Receive Date: 20251211
  Receipt Date: 20251211
  Transmission Date: 20260117
  Serious: Yes (Other)
  Sender: RANBAXY
  Company Number: JP-SUN PHARMACEUTICAL INDUSTRIES INC-2025R1-533273

PATIENT
  Age: 68 Year
  Sex: Male

DRUGS (1)
  1. CLOTRIMAZOLE [Suspect]
     Active Substance: CLOTRIMAZOLE
     Indication: Product used for unknown indication
     Dosage: UNK
     Route: 047

REACTIONS (9)
  - Eye pain [Unknown]
  - Lacrimal disorder [Unknown]
  - Vision blurred [Unknown]
  - Chemical burn [Unknown]
  - Keratitis [Unknown]
  - Accidental exposure to product by elderly person [Unknown]
  - Packaging design issue [Unknown]
  - Medication error [Unknown]
  - Toxicity to various agents [Unknown]
